FAERS Safety Report 10746662 (Version 2)
Quarter: 2015Q1

REPORT INFORMATION
  Report Type: Report from Study
  Country: MX (occurrence: MX)
  Receive Date: 20150128
  Receipt Date: 20150211
  Transmission Date: 20150721
  Serious: Yes (Other)
  Sender: FDA-Public Use
  Company Number: PHHY2015MX010015

PATIENT
  Sex: Male

DRUGS (2)
  1. CO-DIOVAN [Suspect]
     Active Substance: HYDROCHLOROTHIAZIDE\VALSARTAN
     Indication: HYPERTENSION
     Dosage: 1 DF, QD (IN THE MORNING)
     Route: 065
  2. ASPIRIN PROTECT [Concomitant]
     Active Substance: ASPIRIN
     Indication: HYPERTENSION
     Dosage: 1 OT, QD (IN THE AFTERNOON)
     Route: 065

REACTIONS (3)
  - Blood uric acid increased [Unknown]
  - Diabetes mellitus [Not Recovered/Not Resolved]
  - Hearing impaired [Not Recovered/Not Resolved]
